FAERS Safety Report 4738046-6 (Version None)
Quarter: 2005Q3

REPORT INFORMATION
  Report Type: 
  Country: None (occurrence: None)
  Receive Date: 20050809
  Receipt Date: 20050516
  Transmission Date: 20060218
  Serious: Yes (Hospitalization, Disabling)
  Sender: FDA-Public Use
  Company Number: 2005GB00966

PATIENT
  Age: 76 Year
  Sex: Male

DRUGS (7)
  1. QUETIAPINE FUMARATE [Suspect]
     Indication: MANIA
     Route: 048
  2. PRIADEL [Interacting]
     Indication: AFFECTIVE DISORDER
     Route: 048
  3. PRIADEL [Interacting]
     Route: 048
     Dates: start: 20050207, end: 20050228
  4. BENDROFLUAZIDE [Concomitant]
     Indication: HYPERTENSION
     Route: 048
     Dates: end: 20050228
  5. OMEPRAZOLE [Concomitant]
     Route: 048
  6. TAMSULOSIN [Concomitant]
     Route: 048
  7. LORAZEPAM [Concomitant]
     Indication: AGITATION
     Route: 048

REACTIONS (6)
  - CEREBROVASCULAR ACCIDENT [None]
  - CEREBROVASCULAR DISORDER [None]
  - DRUG INTERACTION [None]
  - DRUG LEVEL INCREASED [None]
  - THERAPEUTIC AGENT TOXICITY [None]
  - TRANSIENT ISCHAEMIC ATTACK [None]
